FAERS Safety Report 7494958-4 (Version None)
Quarter: 2011Q2

REPORT INFORMATION
  Report Type: 
  Country: None (occurrence: None)
  Receive Date: 20110520
  Receipt Date: 20110510
  Transmission Date: 20111010
  Serious: Yes (Hospitalization)
  Sender: FDA-Public Use
  Company Number: US-UCBSA-023895

PATIENT
  Sex: Female
  Weight: 50.86 kg

DRUGS (10)
  1. ASCAL [Concomitant]
     Indication: CROHN'S DISEASE
     Route: 048
  2. HYDROMORPHONE HCL [Concomitant]
     Indication: PAIN
     Dosage: 1/2 TABLET EVERY 3 HOURS AS NEEDED
     Route: 048
  3. PROTONIX [Concomitant]
     Route: 048
  4. AMOXICILLIN [Concomitant]
     Indication: URINARY TRACT INFECTION
     Route: 048
     Dates: start: 20110401
  5. CIPROFLOXACIN [Concomitant]
     Indication: URINARY TRACT INFECTION
     Route: 048
  6. CIMZIA [Suspect]
     Route: 058
     Dates: end: 20110408
  7. CIMZIA [Suspect]
     Indication: CROHN'S DISEASE
     Route: 058
     Dates: start: 20090926
  8. MELPHALAN HYDROCHLORIDE [Concomitant]
     Indication: CROHN'S DISEASE
     Route: 048
  9. SALINE FLUSH/HEPARIN [Concomitant]
     Indication: CENTRAL VENOUS CATHETERISATION
     Dosage: DAILY DOSE 100 UNITS/ML
  10. ACETAMINOPHEN [Concomitant]
     Indication: PAIN
     Dosage: ONCE EVERY 4-6 HOURS
     Route: 048

REACTIONS (7)
  - INTESTINAL OBSTRUCTION [None]
  - AMNIORRHOEA [None]
  - FUNGAL INFECTION [None]
  - PREGNANCY [None]
  - WEIGHT DECREASED [None]
  - CROHN'S DISEASE [None]
  - PREMATURE DELIVERY [None]
